FAERS Safety Report 5689887-2 (Version None)
Quarter: 2008Q1

REPORT INFORMATION
  Report Type: 
  Country: None (occurrence: None)
  Receive Date: 20080331
  Receipt Date: 20080331
  Transmission Date: 20080703
  Serious: No
  Sender: FDA-Public Use
  Company Number: None

PATIENT
  Age: 78 Year
  Sex: Male
  Weight: 71 kg

DRUGS (2)
  1. VARENICLINE [Suspect]
     Indication: SMOKING CESSATION THERAPY
     Dosage: 0.5MG ONCE PO
     Route: 048
     Dates: start: 20071127, end: 20071127
  2. VARENICLINE [Suspect]
     Indication: TOBACCO USER
     Dosage: 0.5MG ONCE PO
     Route: 048
     Dates: start: 20071127, end: 20071127

REACTIONS (3)
  - DISCOMFORT [None]
  - FEELING ABNORMAL [None]
  - INSOMNIA [None]
